FAERS Safety Report 7225098-7 (Version None)
Quarter: 2011Q1

REPORT INFORMATION
  Report Type: 
  Country: None (occurrence: None)
  Receive Date: 20110104
  Receipt Date: 20101228
  Transmission Date: 20110831
  Serious: Yes (Life-Threatening, Hospitalization)
  Sender: FDA-Public Use
  Company Number: 2010JP006731

PATIENT
  Age: 72 Year
  Sex: Female
  Weight: 50 kg

DRUGS (9)
  1. METHOTREXATE SODIUM [Concomitant]
  2. CYTOTEC [Concomitant]
  3. PROGRAF [Suspect]
     Indication: RHEUMATOID ARTHRITIS
     Dosage: 1 MG, UID/QD, ORAL
     Route: 048
     Dates: start: 20101019, end: 20101116
  4. NEUROTROPIN (THIAMINE HYDROCHLORIDE) TABLET [Concomitant]
  5. CRESTOR (ROSUVASTATIN) TABLET [Concomitant]
  6. OLMETEC (OLMESARTAN MEDOXOMIL) TABLET [Suspect]
     Indication: HYPERTENSION
     Dosage: 20 MG, UID/QD, ORAL
     Route: 048
     Dates: start: 20060420, end: 20101116
  7. PREDNISOLONE [Concomitant]
  8. GLAKAY (MENATETRENONE) CAPSULE [Concomitant]
  9. GASTER (FAMOTIDINE) ORODISPERSIBLE CR TABLET [Concomitant]

REACTIONS (4)
  - METABOLIC ACIDOSIS [None]
  - DRUG INTERACTION [None]
  - HYPERKALAEMIA [None]
  - ELECTROCARDIOGRAM T WAVE ABNORMAL [None]
